FAERS Safety Report 12183683 (Version 1)
Quarter: 2016Q1

REPORT INFORMATION
  Report Type: Spontaneous
  Country: US (occurrence: None)
  Receive Date: 20160315
  Receipt Date: 20160315
  Transmission Date: 20160526
  Serious: Yes (Life-Threatening)
  Sender: FDA-Public Use
  Company Number: None

PATIENT
  Age: 67 Year
  Sex: Female

DRUGS (1)
  1. LOVASTATIN. [Suspect]
     Active Substance: LOVASTATIN
     Indication: BLOOD CHOLESTEROL INCREASED
     Dosage: 20 MG QPM PO
     Route: 048
     Dates: start: 200907, end: 201603

REACTIONS (3)
  - Impaired driving ability [None]
  - Muscular weakness [None]
  - Cough [None]

NARRATIVE: CASE EVENT DATE: 20160313
